FAERS Safety Report 19186752 (Version 1)
Quarter: 2021Q2

REPORT INFORMATION
  Report Type: Spontaneous
  Country: US (occurrence: US)
  Receive Date: 20210428
  Receipt Date: 20210428
  Transmission Date: 20210717
  Serious: No
  Sender: FDA-Public Use
  Company Number: US-TARO-2020TAR01713

PATIENT

DRUGS (1)
  1. METRONIDAZOLE GEL USP, 1% [Suspect]
     Active Substance: METRONIDAZOLE
     Indication: ROSACEA
     Dosage: BID, RIGHT UPPER CHEEK, AND ACROSS THE NOSE, CONTAINER SIZE: 60 GRAMS, STORAGE CONDITIONS: ROOM TEMP
     Route: 061
     Dates: start: 20201028

REACTIONS (4)
  - Product quality issue [Unknown]
  - Skin exfoliation [Recovering/Resolving]
  - Erythema [Recovering/Resolving]
  - Scab [Recovering/Resolving]

NARRATIVE: CASE EVENT DATE: 202010
